FAERS Safety Report 5804719-7 (Version None)
Quarter: 2008Q3

REPORT INFORMATION
  Report Type: 
  Country: None (occurrence: None)
  Receive Date: 20080709
  Receipt Date: 20080708
  Transmission Date: 20090109
  Serious: Yes (Disabling)
  Sender: FDA-Public Use
  Company Number: US-ASTRAZENECA-2007UW11188

PATIENT
  Age: 72 Year
  Sex: Female
  Weight: 68 kg

DRUGS (3)
  1. CRESTOR [Suspect]
     Indication: BLOOD CHOLESTEROL
     Route: 048
     Dates: end: 20070501
  2. SENSIPAR [Suspect]
     Dosage: 2 IN 1 DAY
     Dates: start: 20060301, end: 20070401
  3. ZETIA [Concomitant]

REACTIONS (8)
  - BEDRIDDEN [None]
  - CONTUSION [None]
  - FATIGUE [None]
  - ILL-DEFINED DISORDER [None]
  - MUSCLE DISORDER [None]
  - MUSCULAR WEAKNESS [None]
  - MYALGIA [None]
  - NAUSEA [None]
